FAERS Safety Report 6184597-X (Version None)
Quarter: 2009Q2

REPORT INFORMATION
  Report Type: 
  Country: None (occurrence: None)
  Receive Date: 20090508
  Receipt Date: 20090504
  Transmission Date: 20091009
  Serious: Yes (Death, Hospitalization)
  Sender: FDA-Public Use
  Company Number: PHHY2009US12435

PATIENT
  Sex: Male
  Weight: 90.703 kg

DRUGS (2)
  1. GLEEVEC [Suspect]
     Indication: CHRONIC MYELOID LEUKAEMIA
     Dosage: 100 MG, QD
     Route: 048
     Dates: start: 20081230
  2. ANTIBIOTICS [Concomitant]
     Route: 042

REACTIONS (12)
  - ATRIAL FIBRILLATION [None]
  - BACTERAEMIA [None]
  - BLOOD CHLORIDE INCREASED [None]
  - BLOOD IRON DECREASED [None]
  - CARDIAC FAILURE CONGESTIVE [None]
  - CHRONIC OBSTRUCTIVE PULMONARY DISEASE [None]
  - DYSPNOEA [None]
  - IRON BINDING CAPACITY TOTAL DECREASED [None]
  - RENAL FAILURE CHRONIC [None]
  - TRANSFERRIN SATURATION DECREASED [None]
  - TROPONIN I INCREASED [None]
  - WHITE BLOOD CELL COUNT INCREASED [None]
